FAERS Safety Report 16398539 (Version 1)
Quarter: 2019Q3

REPORT INFORMATION
  Report Type: Spontaneous
  Country: US (occurrence: US)
  Receive Date: 20190605
  Receipt Date: 20190605
  Transmission Date: 20191004
  Serious: No
  Sender: FDA-Public Use
  Company Number: None

PATIENT
  Age: 17 Year
  Sex: Female
  Weight: 51.75 kg

DRUGS (2)
  1. ISOTRET [Concomitant]
     Dates: start: 20190425, end: 20190529
  2. ISOTRETINOIN. [Suspect]
     Active Substance: ISOTRETINOIN
     Indication: ACNE
     Route: 048
     Dates: start: 20190425, end: 20190529

REACTIONS (2)
  - Maternal exposure during pregnancy [None]
  - Pregnancy test positive [None]

NARRATIVE: CASE EVENT DATE: 20190528
